FAERS Safety Report 7085793-X (Version None)
Quarter: 2010Q4

REPORT INFORMATION
  Report Type: 
  Country: None (occurrence: None)
  Receive Date: 20101001
  Receipt Date: 20100809
  Transmission Date: 20110411
  Serious: No
  Sender: FDA-Public Use
  Company Number: 1000015554

PATIENT
  Age: 57 Year
  Sex: Female

DRUGS (3)
  1. BYSTOLIC [Suspect]
     Indication: HYPERTENSION
     Dosage: 10 MG (10 MG, 1 IN 1 D), ORAL
     Route: 048
     Dates: start: 20091201
  2. CLIMARA [Concomitant]
  3. ENBREL [Concomitant]

REACTIONS (2)
  - DRUG INEFFECTIVE [None]
  - TACHYCARDIA [None]
